FAERS Safety Report 21886962 (Version 1)
Quarter: 2023Q1

REPORT INFORMATION
  Report Type: Spontaneous
  Country: DE (occurrence: DE)
  Receive Date: 20230119
  Receipt Date: 20230119
  Transmission Date: 20230418
  Serious: Yes (Hospitalization, Other)
  Sender: FDA-Public Use
  Company Number: DE-JAZZ-2023-DE-001187

PATIENT
  Age: 26 Year
  Sex: Female

DRUGS (1)
  1. XYREM [Suspect]
     Active Substance: SODIUM OXYBATE
     Indication: Narcolepsy
     Dosage: 9 GRAM, QD
     Route: 048

REACTIONS (4)
  - Hypokalaemia [Unknown]
  - Metabolic alkalosis [Unknown]
  - Brain natriuretic peptide increased [Unknown]
  - Hypernatraemia [Unknown]
